FAERS Safety Report 20110600 (Version 1)
Quarter: 2021Q4

REPORT INFORMATION
  Report Type: Spontaneous
  Country: US (occurrence: US)
  Receive Date: 20211124
  Receipt Date: 20211124
  Transmission Date: 20220304
  Serious: No
  Sender: FDA-Public Use
  Company Number: US-NOVOPROD-849802

PATIENT
  Sex: Female

DRUGS (2)
  1. NOVOLOG [Suspect]
     Active Substance: INSULIN ASPART
     Indication: Product used for unknown indication
     Dosage: UNK
     Route: 065
  2. NOVOLOG [Suspect]
     Active Substance: INSULIN ASPART
     Dosage: UNK
     Route: 065

REACTIONS (1)
  - Visual impairment [Unknown]
